FAERS Safety Report 9205420 (Version 3)
Quarter: 2013Q3

REPORT INFORMATION
  Report Type: Spontaneous
  Country: US (occurrence: US)
  Receive Date: 20130403
  Receipt Date: 20130712
  Transmission Date: 20140515
  Serious: Yes (Other)
  Sender: FDA-Public Use
  Company Number: US-009507513-1304USA000535

PATIENT
  Age: 40 Year
  Sex: Female
  Weight: 61.22 kg

DRUGS (3)
  1. IMPLANON [Suspect]
     Indication: CONTRACEPTION
     Dosage: UNK
     Route: 059
     Dates: start: 201202, end: 20130322
  2. ZYRTEC [Concomitant]
  3. DEXILANT [Concomitant]

REACTIONS (7)
  - Suicidal ideation [Not Recovered/Not Resolved]
  - Dizziness [Recovered/Resolved]
  - Depressive symptom [Recovered/Resolved]
  - Hypotension [Not Recovered/Not Resolved]
  - Anger [Not Recovered/Not Resolved]
  - Crying [Not Recovered/Not Resolved]
  - Confusional state [Not Recovered/Not Resolved]
